FAERS Safety Report 6439313-0 (Version None)
Quarter: 2009Q4

REPORT INFORMATION
  Report Type: 
  Country: None (occurrence: None)
  Receive Date: 20091113
  Receipt Date: 20091103
  Transmission Date: 20100525
  Serious: Yes (Hospitalization)
  Sender: FDA-Public Use
  Company Number: US-ABBOTT-09P-163-0606535-00

PATIENT
  Age: 56 Year
  Sex: Male

DRUGS (6)
  1. RITONAVIR [Suspect]
     Indication: HIV INFECTION
     Dates: start: 20090901
  2. PREZISTA [Suspect]
     Indication: HIV INFECTION
     Route: 048
     Dates: start: 20090901
  3. EPIVIR [Concomitant]
     Indication: DRUG USE FOR UNKNOWN INDICATION
  4. COMBIVIR [Concomitant]
     Indication: HIV INFECTION
  5. SUSTIVA [Concomitant]
     Indication: HIV INFECTION
  6. ZIDOVUDINE [Concomitant]
     Indication: HIV INFECTION

REACTIONS (2)
  - CREATININE RENAL CLEARANCE DECREASED [None]
  - DYSPNOEA [None]
